FAERS Safety Report 8776542 (Version 3)
Quarter: 2012Q4

REPORT INFORMATION
  Report Type: 
  Country: US (occurrence: US)
  Receive Date: 20120910
  Receipt Date: 20121102
  Transmission Date: 20130627
  Serious: Yes (Disabling, Other)
  Sender: FDA-Public Use
  Company Number: PHEH2012US012220

PATIENT
  Age: 71 Year
  Sex: Male
  Weight: 102.4 kg

DRUGS (9)
  1. ZOMETA [Suspect]
     Indication: METASTASES TO BONE
     Dosage: 3 mg, every 3 weeks
     Route: 042
     Dates: start: 20120612, end: 20120814
  2. ZOMETA [Suspect]
     Dosage: 3 mg, every 3 weeks
     Route: 042
  3. TYLENOL [Concomitant]
  4. CELEBREX [Concomitant]
  5. LORTAB [Concomitant]
  6. CARBO [Concomitant]
     Indication: NEOPLASM MALIGNANT
     Dates: start: 201202, end: 20120612
  7. ALIMTA [Concomitant]
     Indication: NEOPLASM MALIGNANT
     Route: 042
     Dates: start: 201202
  8. RECLAST [Concomitant]
     Indication: NEUTROPENIA
     Dates: start: 201203
  9. CHEMOTHERAPEUTICS [Concomitant]

REACTIONS (10)
  - Pain [Recovering/Resolving]
  - Neoplasm progression [Unknown]
  - Malignant neoplasm progression [Unknown]
  - Pyrexia [Recovering/Resolving]
  - Blood pressure decreased [Recovering/Resolving]
  - Bone pain [Recovering/Resolving]
  - Dizziness [Recovering/Resolving]
  - Syncope [Unknown]
  - Mass [Unknown]
  - Pain in extremity [Unknown]
